FAERS Safety Report 5576338-1 (Version None)
Quarter: 2007Q4

REPORT INFORMATION
  Report Type: 
  Country: None (occurrence: None)
  Receive Date: 20071228
  Receipt Date: 20071217
  Transmission Date: 20080405
  Serious: Yes (Hospitalization)
  Sender: FDA-Public Use
  Company Number: PL-ROCHE-538072

PATIENT
  Age: 44 Year
  Sex: Male

DRUGS (2)
  1. RIBAVIRIN [Suspect]
     Route: 048
     Dates: start: 20030901, end: 20040427
  2. INTERFERON ALFA-2B [Suspect]
     Route: 058
     Dates: start: 20030901, end: 20040427

REACTIONS (13)
  - AGITATION [None]
  - COGNITIVE DISORDER [None]
  - DELUSION [None]
  - DELUSIONAL DISORDER, PERSECUTORY TYPE [None]
  - DEMENTIA [None]
  - DISTURBANCE IN ATTENTION [None]
  - EXTRAPYRAMIDAL DISORDER [None]
  - HEPATOTOXICITY [None]
  - MUSCULOSKELETAL STIFFNESS [None]
  - NUCLEAR MAGNETIC RESONANCE IMAGING BRAIN ABNORMAL [None]
  - PARKINSONISM [None]
  - SOMNOLENCE [None]
  - SUICIDAL IDEATION [None]
